FAERS Safety Report 8369048-9 (Version None)
Quarter: 2012Q2

REPORT INFORMATION
  Report Type: 
  Country: None (occurrence: None)
  Receive Date: 20120516
  Receipt Date: 20120516
  Transmission Date: 20120825
  Serious: Yes (Life-Threatening)
  Sender: FDA-Public Use
  Company Number: None

PATIENT
  Age: 53 Year
  Weight: 81.6475 kg

DRUGS (1)
  1. GEMFIBROZIL [Suspect]
     Indication: BLOOD TRIGLYCERIDES INCREASED
     Dosage: ONCE A DAY PO
     Route: 048
     Dates: start: 20111201, end: 20120510

REACTIONS (3)
  - MYALGIA [None]
  - MUSCLE SPASMS [None]
  - SCIATICA [None]
